FAERS Safety Report 13527143 (Version 1)
Quarter: 2017Q2

REPORT INFORMATION
  Report Type: Spontaneous
  Country: US (occurrence: US)
  Receive Date: 20170509
  Receipt Date: 20170509
  Transmission Date: 20170830
  Serious: No
  Sender: FDA-Public Use
  Company Number: None

PATIENT
  Age: 72 Year
  Sex: Female

DRUGS (1)
  1. TACROLIMUS CAP 1MG ACCORD HEALTHCARE [Suspect]
     Active Substance: TACROLIMUS
     Dosage: 3 CAPS BID ORAL
     Route: 048

REACTIONS (3)
  - Multiple allergies [None]
  - Hyperglycaemia [None]
  - Fatigue [None]

NARRATIVE: CASE EVENT DATE: 20170502
